FAERS Safety Report 7894755-1 (Version None)
Quarter: 2011Q4

REPORT INFORMATION
  Report Type: 
  Country: None (occurrence: None)
  Receive Date: 20111106
  Receipt Date: 20110818
  Transmission Date: 20120403
  Serious: No
  Sender: FDA-Public Use
  Company Number: US-AMGEN-USASP2011042248

PATIENT
  Age: 67 Year
  Sex: Female

DRUGS (9)
  1. ALLOPURINOL [Concomitant]
     Dosage: 100 MG, UNK
  2. NIASPAN [Concomitant]
     Dosage: UNK
  3. VITAMIN E [Concomitant]
     Dosage: 1000 IU, UNK
  4. CALCIUM [Concomitant]
     Dosage: UNK
  5. MULTI-VITAMIN [Concomitant]
     Dosage: UNK
  6. LISINOPRIL [Concomitant]
     Dosage: 10 MG, UNK
  7. ENBREL [Suspect]
     Indication: PRODUCT USED FOR UNKNOWN INDICATION
     Dosage: 50 MG, QWK
     Route: 058
  8. LOVAZA [Concomitant]
     Dosage: 1 G, UNK
  9. ASPIRIN [Concomitant]
     Dosage: 81 MG, UNK

REACTIONS (4)
  - ARTHRALGIA [None]
  - HEADACHE [None]
  - NODULE [None]
  - NECK PAIN [None]
